FAERS Safety Report 7121218-3 (Version None)
Quarter: 2010Q4

REPORT INFORMATION
  Report Type: 
  Country: None (occurrence: None)
  Receive Date: 20101124
  Receipt Date: 20101118
  Transmission Date: 20110411
  Serious: Yes (Death, Other)
  Sender: FDA-Public Use
  Company Number: PHHY2010JP67086

PATIENT
  Sex: Male

DRUGS (6)
  1. AFINITOR [Suspect]
     Indication: METASTATIC RENAL CELL CARCINOMA
     Dosage: 10 MG, QD
     Route: 048
     Dates: start: 20100707, end: 20100723
  2. AFINITOR [Suspect]
     Dosage: 10 MG, QD
     Route: 048
     Dates: start: 20100802, end: 20100813
  3. AFINITOR [Suspect]
     Dosage: 5 MG, QD
     Route: 048
     Dates: start: 20100823, end: 20100908
  4. AFINITOR [Suspect]
     Dosage: 5 MG, QD
     Route: 048
     Dates: start: 20100917, end: 20100928
  5. PROPYLTHIOURACIL [Concomitant]
     Dosage: 250 MG, UNK
     Route: 048
  6. ASPIRIN [Concomitant]
     Dosage: 100 MG, UNK
     Route: 048

REACTIONS (4)
  - CARDIAC TAMPONADE [None]
  - LYMPHOCYTE COUNT DECREASED [None]
  - MALIGNANT NEOPLASM PROGRESSION [None]
  - PLATELET COUNT DECREASED [None]
